FAERS Safety Report 8168573-3 (Version None)
Quarter: 2012Q1

REPORT INFORMATION
  Report Type: 
  Country: None (occurrence: None)
  Receive Date: 20120227
  Receipt Date: 20120213
  Transmission Date: 20120608
  Serious: Yes (Hospitalization)
  Sender: FDA-Public Use
  Company Number: DE-ROCHE-1024333

PATIENT
  Age: 44 Year
  Sex: Female
  Weight: 67.1 kg

DRUGS (7)
  1. METOCLOPRAMIDE [Concomitant]
     Dates: start: 20110304, end: 20111101
  2. RAMIPRIL [Concomitant]
     Dates: start: 20111018
  3. ACTEMRA [Suspect]
     Indication: RHEUMATOID ARTHRITIS
     Dosage: DATE OF LAST DOSE PRIOR TO SAE: 01/DEC/2011
     Route: 042
     Dates: start: 20110905
  4. LEVONORGESTREL + ETHINYL ESTRADIOL [Concomitant]
     Dates: start: 19860101
  5. AMITRIPTYLINE HCL [Concomitant]
     Dates: start: 20110929
  6. NITROLINGUAL [Concomitant]
     Dates: start: 20111018
  7. METOPROLOL TARTRATE AND HYDROCHLOROTHIAZIDE [Concomitant]
     Dates: start: 20110718

REACTIONS (1)
  - HYPERTENSIVE CRISIS [None]
